FAERS Safety Report 25234216 (Version 3)
Quarter: 2025Q2

REPORT INFORMATION
  Report Type: Spontaneous
  Country: PL (occurrence: PL)
  Receive Date: 20250424
  Receipt Date: 20250522
  Transmission Date: 20250716
  Serious: Yes (Hospitalization, Other)
  Sender: GENMAB
  Company Number: PL-ABBVIE-6228817

PATIENT
  Age: 54 Year
  Sex: Male
  Weight: 69 kg

DRUGS (10)
  1. EPCORITAMAB [Suspect]
     Active Substance: EPCORITAMAB
     Indication: Diffuse large B-cell lymphoma
     Route: 058
     Dates: start: 20250102
  2. EPCORITAMAB [Suspect]
     Active Substance: EPCORITAMAB
     Route: 058
     Dates: start: 20250401
  3. EPCORITAMAB [Suspect]
     Active Substance: EPCORITAMAB
     Route: 058
     Dates: end: 20250401
  4. SODIUM CHLORIDE [Concomitant]
     Active Substance: SODIUM CHLORIDE
     Indication: Fluid replacement
     Dosage: 500 MILLIGRAM QD (FORM STRENGTH: 0.9 PERCENT)
     Route: 042
     Dates: start: 20250404, end: 20250416
  5. INSULIN HUMAN [Concomitant]
     Active Substance: INSULIN HUMAN
     Indication: Diabetes mellitus
     Route: 065
  6. ENOXAPARIN SODIUM [Concomitant]
     Active Substance: ENOXAPARIN SODIUM
     Indication: Product used for unknown indication
     Route: 058
     Dates: start: 20250406, end: 20250415
  7. METAMIZOLE SODIUM [Concomitant]
     Active Substance: METAMIZOLE SODIUM
     Indication: Pyrexia
     Route: 042
  8. CEFTRIAXONE SODIUM [Concomitant]
     Active Substance: CEFTRIAXONE SODIUM
     Indication: Pyrexia
     Dosage: 1 GRAM QD
     Route: 042
     Dates: start: 20250401, end: 20250402
  9. MEROPENEM [Concomitant]
     Active Substance: MEROPENEM
     Indication: C-reactive protein
     Route: 042
     Dates: start: 20250403, end: 20250414
  10. MEROPENEM [Concomitant]
     Active Substance: MEROPENEM
     Indication: Pyrexia

REACTIONS (9)
  - Body temperature abnormal [Recovered/Resolved]
  - Coma [Recovered/Resolved]
  - Immune effector cell-associated neurotoxicity syndrome [Recovered/Resolved]
  - C-reactive protein increased [Unknown]
  - Hyperhidrosis [Unknown]
  - White blood cell count decreased [Unknown]
  - Neutropenia [Unknown]
  - Pyrexia [Unknown]
  - Cytokine release syndrome [Unknown]

NARRATIVE: CASE EVENT DATE: 20250101
